FAERS Safety Report 9949527 (Version 1)
Quarter: 2014Q1

REPORT INFORMATION
  Report Type: Report from Study
  Country: US (occurrence: US)
  Receive Date: 20140304
  Receipt Date: 20140304
  Transmission Date: 20141002
  Serious: No
  Sender: FDA-Public Use
  Company Number: US-ABBVIE-13P-163-1067538-00

PATIENT
  Age: 31 Year
  Sex: Female

DRUGS (10)
  1. HUMIRA [Suspect]
     Indication: CROHN^S DISEASE
     Dates: start: 201003
  2. WELCHOL [Concomitant]
     Indication: BILE ACID MALABSORPTION
  3. ATIVAN [Concomitant]
     Indication: ANXIETY
  4. LEVSIN [Concomitant]
     Indication: MUSCLE SPASMS
  5. PERCOCET [Concomitant]
     Indication: DYSMENORRHOEA
     Dosage: 5/325MG
  6. PAMELOR [Concomitant]
     Indication: DEPRESSION
     Route: 048
  7. PRILOSEC [Concomitant]
     Indication: PRODUCT USED FOR UNKNOWN INDICATION
  8. CARAFATE [Concomitant]
     Indication: PRODUCT USED FOR UNKNOWN INDICATION
  9. ZOFRAN [Concomitant]
  10. RESTORIL [Concomitant]
     Indication: PRODUCT USED FOR UNKNOWN INDICATION

REACTIONS (1)
  - Rash macular [Recovered/Resolved]
